FAERS Safety Report 16789706 (Version 3)
Quarter: 2019Q4

REPORT INFORMATION
  Report Type: Spontaneous
  Country: US (occurrence: US)
  Receive Date: 20190910
  Receipt Date: 20191223
  Transmission Date: 20200122
  Serious: Yes (Hospitalization, Other)
  Sender: FDA-Public Use
  Company Number: US-SA-2019SA244770

PATIENT
  Age: 57 Year
  Sex: Female

DRUGS (1)
  1. DUPIXENT [Suspect]
     Active Substance: DUPILUMAB
     Indication: DERMATITIS ATOPIC
     Dosage: 300 MG, QOW
     Route: 058
     Dates: start: 20180109

REACTIONS (9)
  - Deep vein thrombosis [Recovering/Resolving]
  - Pruritus [Unknown]
  - Contraindicated product administered [Unknown]
  - Malaise [Recovering/Resolving]
  - Pulmonary embolism [Recovering/Resolving]
  - Dermatitis atopic [Unknown]
  - Headache [Unknown]
  - Pyrexia [Unknown]
  - Rash [Unknown]

NARRATIVE: CASE EVENT DATE: 201911
